FAERS Safety Report 7407522 (Version 9)
Quarter: 2017Q4

REPORT INFORMATION
  Report Type: Report from Study
  Country: JP (occurrence: JP)
  Receive Date: 20100602
  Receipt Date: 20171208
  Transmission Date: 20180321
  Serious: Yes (Hospitalization, Other)
  Sender: FDA-Public Use
  Company Number: PHHY2010JP33455

PATIENT
  Age: 40 Year
  Sex: Female
  Weight: 43 kg

DRUGS (15)
  1. AFINITOR [Suspect]
     Active Substance: EVEROLIMUS
     Indication: METASTATIC RENAL CELL CARCINOMA
     Dosage: 10 MG, QD
     Route: 048
     Dates: start: 20100421, end: 20100518
  2. IFOSFAMIDE. [Concomitant]
     Active Substance: IFOSFAMIDE
     Indication: METASTATIC RENAL CELL CARCINOMA
     Dosage: 3000000 DF, QD
     Route: 065
     Dates: start: 20070920, end: 20090729
  3. AFINITOR [Suspect]
     Active Substance: EVEROLIMUS
     Dosage: 5 MG, QD
     Route: 048
     Dates: start: 20100610, end: 20100704
  4. MUCOSTA [Concomitant]
     Active Substance: REBAMIPIDE
     Indication: PROPHYLAXIS
     Dosage: 300 MG, UNK
     Route: 048
     Dates: start: 200709
  5. REBAMIPIDE [Concomitant]
     Active Substance: REBAMIPIDE
     Indication: PRODUCT USED FOR UNKNOWN INDICATION
     Route: 048
  6. BIO-THREE [Concomitant]
     Active Substance: HERBALS
     Indication: PRODUCT USED FOR UNKNOWN INDICATION
     Route: 048
  7. PROTECADIN [Concomitant]
     Active Substance: LAFUTIDINE
     Indication: PRODUCT USED FOR UNKNOWN INDICATION
     Route: 048
  8. HYPEN [Concomitant]
     Active Substance: ETODOLAC
     Indication: METASTATIC RENAL CELL CARCINOMA
     Dosage: 200 MG, UNK
     Route: 048
     Dates: start: 20100406
  9. SODIUM ALGINATE [Concomitant]
     Active Substance: SODIUM ALGINATE
     Indication: PRODUCT USED FOR UNKNOWN INDICATION
     Dosage: 60 UL, UNK
     Route: 048
     Dates: start: 20100731
  10. SUNITINIB MALATE. [Concomitant]
     Active Substance: SUNITINIB MALATE
     Indication: METASTATIC RENAL CELL CARCINOMA
     Dosage: 50 MG, QD
     Route: 048
     Dates: start: 20090821, end: 20091029
  11. NEXAVAR [Concomitant]
     Active Substance: SORAFENIB
     Indication: METASTATIC RENAL CELL CARCINOMA
     Dosage: 800 MG, QD
     Route: 048
     Dates: start: 20080731, end: 20100420
  12. AFINITOR [Suspect]
     Active Substance: EVEROLIMUS
     Dosage: 5 MG, QD
     Route: 048
     Dates: start: 20100816, end: 20100820
  13. THYRADIN [Concomitant]
     Active Substance: LEVOTHYROXINE
     Indication: PROPHYLAXIS
     Dosage: 50 UG, UNK
     Route: 048
     Dates: start: 200808
  14. WYPAX [Concomitant]
     Active Substance: LORAZEPAM
     Indication: PRODUCT USED FOR UNKNOWN INDICATION
     Route: 048
  15. DUROTEP JANSSEN [Concomitant]
     Active Substance: FENTANYL
     Indication: PRODUCT USED FOR UNKNOWN INDICATION
     Route: 062

REACTIONS (8)
  - Fatigue [Unknown]
  - Malignant neoplasm progression [Not Recovered/Not Resolved]
  - Cough [Unknown]
  - Malaise [Unknown]
  - Interstitial lung disease [Recovering/Resolving]
  - White blood cell count decreased [Recovered/Resolved]
  - Pneumonia staphylococcal [Recovering/Resolving]
  - Cell marker increased [Unknown]

NARRATIVE: CASE EVENT DATE: 20100506
